FAERS Safety Report 12326972 (Version 1)
Quarter: 2016Q2

REPORT INFORMATION
  Report Type: Spontaneous
  Country: US (occurrence: None)
  Receive Date: 20160502
  Receipt Date: 20160502
  Transmission Date: 20160815
  Serious: No
  Sender: FDA-Public Use
  Company Number: None

PATIENT
  Age: 50 Year
  Sex: Female

DRUGS (1)
  1. NEORAL [Suspect]
     Active Substance: CYCLOSPORINE
     Indication: PRODUCT USED FOR UNKNOWN INDICATION

REACTIONS (2)
  - Fluid retention [None]
  - Hypertension [None]

NARRATIVE: CASE EVENT DATE: 20160429
